FAERS Safety Report 5443451-9 (Version None)
Quarter: 2007Q3

REPORT INFORMATION
  Report Type: 
  Country: None (occurrence: None)
  Receive Date: 20070905
  Receipt Date: 20070829
  Transmission Date: 20080115
  Serious: Yes (Life-Threatening)
  Sender: FDA-Public Use
  Company Number: US-MERCK-0708USA05560

PATIENT
  Age: 70 Year
  Sex: Female

DRUGS (4)
  1. JANUVIA [Suspect]
     Indication: DIABETES MELLITUS
     Route: 048
     Dates: start: 20070601
  2. PRAVACHOL [Concomitant]
     Route: 065
  3. METFORMIN [Concomitant]
     Route: 065
  4. ALTACE [Concomitant]
     Route: 065

REACTIONS (1)
  - BLOOD CREATININE INCREASED [None]
